FAERS Safety Report 4302130-1 (Version None)
Quarter: 2004Q1

REPORT INFORMATION
  Report Type: 
  Country: None (occurrence: None)
  Receive Date: 20040220
  Receipt Date: 20040217
  Transmission Date: 20041129
  Serious: Yes (Hospitalization)
  Sender: FDA-Public Use
  Company Number: STA-AE-04-MTX-067

PATIENT
  Age: 78 Year
  Sex: Female

DRUGS (4)
  1. RHEUMATREX [Suspect]
     Indication: RHEUMATOID ARTHRITIS
     Dosage: 4 MG 1 X PER 1 WK, ORAL
     Route: 048
     Dates: start: 20010904, end: 20020430
  2. RHEUMATREX [Suspect]
     Indication: RHEUMATOID ARTHRITIS
     Dosage: ORAL
     Route: 048
     Dates: start: 20020507, end: 20030527
  3. ETODOLAC [Concomitant]
  4. PREDNISOLONE [Concomitant]

REACTIONS (10)
  - BONE MARROW DEPRESSION [None]
  - COUGH [None]
  - DYSPNOEA [None]
  - LIVER DISORDER [None]
  - LUNG DISORDER [None]
  - NASOPHARYNGITIS [None]
  - OXYGEN SATURATION DECREASED [None]
  - PALPITATIONS [None]
  - PRODUCTIVE COUGH [None]
  - PYREXIA [None]
